FAERS Safety Report 4336953-X (Version None)
Quarter: 2004Q1

REPORT INFORMATION
  Report Type: 
  Country: None (occurrence: None)
  Receive Date: 20040329
  Receipt Date: 20040205
  Transmission Date: 20041129
  Serious: No
  Sender: FDA-Public Use
  Company Number: USA040258651

PATIENT
  Sex: Female

DRUGS (2)
  1. STRATTERA [Suspect]
  2. WELLBUTRIN [Concomitant]

REACTIONS (1)
  - ANGER [None]
